FAERS Safety Report 10566101 (Version 1)
Quarter: 2014Q4

REPORT INFORMATION
  Report Type: Spontaneous
  Country: US (occurrence: US)
  Receive Date: 20141105
  Receipt Date: 20141105
  Transmission Date: 20150529
  Serious: Yes (Death)
  Sender: FDA-Public Use
  Company Number: US-ASPEN PHARMA TRADING LIMITED US-AG-2014-004108

PATIENT
  Sex: Male

DRUGS (4)
  1. ARIXTRA [Suspect]
     Active Substance: FONDAPARINUX SODIUM
     Route: 065
  2. ARIXTRA [Suspect]
     Active Substance: FONDAPARINUX SODIUM
     Indication: THROMBOSIS
     Route: 065
     Dates: start: 2012
  3. ARIXTRA [Suspect]
     Active Substance: FONDAPARINUX SODIUM
     Route: 065
  4. ATIVAN [Concomitant]
     Active Substance: LORAZEPAM
     Indication: PRODUCT USED FOR UNKNOWN INDICATION
     Route: 065

REACTIONS (3)
  - Squamous cell carcinoma of lung [Fatal]
  - Malignant neoplasm progression [None]
  - Renal failure [Fatal]
